FAERS Safety Report 5176562-6 (Version None)
Quarter: 2006Q4

REPORT INFORMATION
  Report Type: 
  Country: None (occurrence: None)
  Receive Date: 20061207
  Receipt Date: 20061124
  Transmission Date: 20070319
  Serious: Yes (Death, Hospitalization)
  Sender: FDA-Public Use
  Company Number: 2003144986JP

PATIENT
  Age: 67 Year
  Sex: Female
  Weight: 38.4 kg

DRUGS (10)
  1. CABERGOLINE [Suspect]
     Indication: PARKINSON'S DISEASE
     Dosage: 4 MG (1 D), ORAL
     Route: 048
     Dates: start: 20001208, end: 20030131
  2. LUVOX [Concomitant]
  3. JUVELA NICOTINATE                       (TOCOPHERYL NICOTINATE) [Concomitant]
  4. CEROCRAL                       (IFENPRODIL TARTRATE) [Concomitant]
  5. RIZE (CLOTIAZEPAM) [Concomitant]
  6. KOLANTYL [Concomitant]
  7. ULCERMIN (SUCRALFATE) [Concomitant]
  8. GRAMALIL (TIAPRIDE HYDROCHLORIDE) [Concomitant]
  9. HYDREA [Concomitant]
  10. ALLOPURINOL [Concomitant]

REACTIONS (14)
  - ALANINE AMINOTRANSFERASE INCREASED [None]
  - AORTIC VALVE INCOMPETENCE [None]
  - ASPARTATE AMINOTRANSFERASE INCREASED [None]
  - BLOOD LACTATE DEHYDROGENASE INCREASED [None]
  - CHEST DISCOMFORT [None]
  - LEUKAEMIA [None]
  - MALAISE [None]
  - MITRAL VALVE INCOMPETENCE [None]
  - OEDEMA PERIPHERAL [None]
  - PLEURAL EFFUSION [None]
  - PULMONARY HYPERTENSION [None]
  - PULMONARY VALVE INCOMPETENCE [None]
  - TRICUSPID VALVE INCOMPETENCE [None]
  - WEIGHT DECREASED [None]
